FAERS Safety Report 20335937 (Version 19)
Quarter: 2024Q1

REPORT INFORMATION
  Report Type: Spontaneous
  Country: US (occurrence: US)
  Receive Date: 20220114
  Receipt Date: 20240308
  Transmission Date: 20240409
  Serious: No
  Sender: FDA-Public Use
  Company Number: US-PFIZER INC-2021045999

PATIENT
  Age: 67 Year
  Sex: Female
  Weight: 57.5 kg

DRUGS (2)
  1. BOSULIF [Suspect]
     Active Substance: BOSUTINIB MONOHYDRATE
     Indication: Chronic myeloid leukaemia
     Dosage: 4 TAB DAILY, INSTR: WITH FOOD
     Route: 048
  2. BOSULIF [Suspect]
     Active Substance: BOSUTINIB MONOHYDRATE
     Dosage: 1 TABLET EVERY DAY
     Route: 048

REACTIONS (8)
  - Neoplasm recurrence [Unknown]
  - Illness [Unknown]
  - Norovirus infection [Unknown]
  - Gastroenteritis viral [Unknown]
  - Fatigue [Unknown]
  - Loss of personal independence in daily activities [Unknown]
  - Memory impairment [Unknown]
  - COVID-19 [Unknown]

NARRATIVE: CASE EVENT DATE: 20211201
